FAERS Safety Report 7332514-9 (Version None)
Quarter: 2011Q1

REPORT INFORMATION
  Report Type: 
  Country: None (occurrence: None)
  Receive Date: 20110304
  Receipt Date: 20100804
  Transmission Date: 20110831
  Serious: Yes (Other)
  Sender: FDA-Public Use
  Company Number: PHHY2010DE90835

PATIENT

DRUGS (1)
  1. EXTAVIA [Suspect]
     Route: 058

REACTIONS (4)
  - HYPOKINESIA [None]
  - ASTHENIA [None]
  - MUSCLE SPASTICITY [None]
  - FEAR [None]
